FAERS Safety Report 11424500 (Version 3)
Quarter: 2015Q4

REPORT INFORMATION
  Report Type: Spontaneous
  Country: US (occurrence: US)
  Receive Date: 20150827
  Receipt Date: 20151102
  Transmission Date: 20160304
  Serious: Yes (Death, Hospitalization, Other)
  Sender: FDA-Public Use
  Company Number: US-ASTELLAS-2015US030714

PATIENT
  Sex: Male

DRUGS (2)
  1. TARCEVA [Suspect]
     Active Substance: ERLOTINIB HYDROCHLORIDE
     Indication: LUNG NEOPLASM MALIGNANT
  2. TARCEVA [Suspect]
     Active Substance: ERLOTINIB HYDROCHLORIDE
     Indication: LUNG NEOPLASM MALIGNANT
     Route: 048
     Dates: start: 20140829

REACTIONS (10)
  - Chronic respiratory failure [Unknown]
  - Pneumonia [Fatal]
  - Chronic obstructive pulmonary disease [Fatal]
  - Bursitis [Unknown]
  - Weight decreased [Unknown]
  - Atrial fibrillation [Fatal]
  - Anaemia [Unknown]
  - Respiratory failure [Fatal]
  - Chronic obstructive pulmonary disease [Unknown]
  - Asthenia [Unknown]
